FAERS Safety Report 5808393-5 (Version None)
Quarter: 2008Q3

REPORT INFORMATION
  Report Type: 
  Country: None (occurrence: None)
  Receive Date: 20080714
  Receipt Date: 20080702
  Transmission Date: 20090109
  Serious: Yes (Hospitalization, Other)
  Sender: FDA-Public Use
  Company Number: PHHY2008CA13087

PATIENT
  Sex: Male

DRUGS (15)
  1. CLOZARIL [Suspect]
     Dosage: 600 MG, ONCE/SINGLE
     Route: 048
     Dates: start: 20080628, end: 20080628
  2. SENNOSIDE [Concomitant]
     Dosage: ONE TAB AT BED TIME
  3. DOCUSATE [Concomitant]
     Dosage: 2 CAPSULES AT BED TIME
  4. PERPHENAZINE [Concomitant]
     Dosage: 8 MG AT BED TIME
  5. OLANZAPINE [Concomitant]
     Dosage: 1 TABLET AT BED TIME
  6. NORVASC [Concomitant]
     Dosage: 5 MG, ONCE/SINGLE
  7. NOVOLIN GE [Concomitant]
     Dosage: 26 UNITS AM, 18 UNITS PM
  8. PANTOPRAZOLE SODIUM [Concomitant]
     Dosage: 40 MG, ONCE/SINGLE
  9. DIVALPROEX SODIUM [Concomitant]
     Dosage: 1250 MG/DAY
  10. OXYBUTYNIN CHLORIDE [Concomitant]
     Dosage: HALF TABLET BID
  11. CELEBREX [Concomitant]
     Dosage: 100 MG, ONCE/SINGLE
  12. ASAPHEN [Concomitant]
     Dosage: 80 MG, ONCE/SINGLE
  13. PRAVASTATIN [Concomitant]
     Dosage: 10 MG, ONCE2SDO
  14. FLOMAX [Concomitant]
     Dosage: 0.4 MG, ONCE/SINGLE
  15. NOVOLIN GE TORONTO [Concomitant]
     Dosage: 10 UNITS BEFORE MEALS
     Route: 058

REACTIONS (6)
  - ACCIDENTAL EXPOSURE [None]
  - ACCIDENTAL OVERDOSE [None]
  - DEPRESSED LEVEL OF CONSCIOUSNESS [None]
  - LETHARGY [None]
  - PNEUMONIA [None]
  - SOMNOLENCE [None]
